FAERS Safety Report 9800803 (Version 1)
Quarter: 2014Q1

REPORT INFORMATION
  Report Type: Spontaneous
  Country: US (occurrence: US)
  Receive Date: 20140107
  Receipt Date: 20140107
  Transmission Date: 20141002
  Serious: No
  Sender: FDA-Public Use
  Company Number: US-009507513-1401USA001583

PATIENT
  Age: 59 Year
  Sex: Female

DRUGS (5)
  1. ASMANEX TWISTHALER [Suspect]
     Indication: ASTHMA PROPHYLAXIS
     Dosage: 2 PUFFS, BID
     Route: 055
     Dates: start: 2013
  2. XOPENEX HFA [Concomitant]
  3. ADVAIR [Concomitant]
  4. SARAFEM [Concomitant]
  5. RELAFEN [Concomitant]

REACTIONS (7)
  - Viral infection [Recovering/Resolving]
  - Malaise [Recovering/Resolving]
  - Flushing [Recovering/Resolving]
  - Delirium [Recovering/Resolving]
  - Confusional state [Recovering/Resolving]
  - Heart rate increased [Recovering/Resolving]
  - Feeling abnormal [Unknown]
